FAERS Safety Report 8621139 (Version 4)
Quarter: 2013Q2

REPORT INFORMATION
  Report Type: Spontaneous
  Country: US (occurrence: US)
  Receive Date: 20120619
  Receipt Date: 20130425
  Transmission Date: 20140414
  Serious: Yes (Other)
  Sender: FDA-Public Use
  Company Number: US-PFIZER INC-2012144366

PATIENT
  Age: 36 Year
  Sex: Female

DRUGS (6)
  1. LYRICA [Suspect]
     Indication: PAIN
     Dosage: 50 (NO UNITS PROVIDED), 1X/DAY (AT HS)
     Route: 048
  2. DEPO-PROVERA [Suspect]
     Dosage: UNK
  3. ALEVE [Concomitant]
     Dosage: UNK
  4. CLONAZEPAM [Concomitant]
     Dosage: UNK
  5. CYCLOBENZAPRINE [Concomitant]
     Dosage: UNK
  6. GABAPENTIN [Concomitant]
     Dosage: UNK

REACTIONS (4)
  - Fibromyalgia [Unknown]
  - Impaired work ability [Unknown]
  - Nasopharyngitis [Unknown]
  - Drug ineffective [Unknown]
